FAERS Safety Report 13517335 (Version 1)
Quarter: 2017Q2

REPORT INFORMATION
  Report Type: Report from Study
  Country: None (occurrence: US)
  Receive Date: 20170505
  Receipt Date: 20170505
  Transmission Date: 20170830
  Serious: Yes (Other)
  Sender: FDA-Public Use
  Company Number: US-ABBVIE-17K-163-1957641-00

PATIENT
  Sex: Female

DRUGS (1)
  1. HUMIRA [Suspect]
     Active Substance: ADALIMUMAB
     Indication: PRODUCT USED FOR UNKNOWN INDICATION
     Route: 058

REACTIONS (7)
  - Blood cholesterol increased [Unknown]
  - Malaise [Unknown]
  - Infection [Unknown]
  - Arrhythmia [Unknown]
  - Weight increased [Unknown]
  - Renal failure [Unknown]
  - Hypertension [Unknown]
